FAERS Safety Report 19460061 (Version 5)
Quarter: 2022Q3

REPORT INFORMATION
  Report Type: Spontaneous
  Country: US (occurrence: US)
  Receive Date: 20210625
  Receipt Date: 20220807
  Transmission Date: 20221027
  Serious: Yes (Other)
  Sender: FDA-Public Use
  Company Number: US-JNJFOC-20210636124

PATIENT
  Age: 42 Year
  Sex: Female

DRUGS (19)
  1. ELMIRON [Suspect]
     Active Substance: PENTOSAN POLYSULFATE SODIUM
     Indication: Cystitis interstitial
     Route: 048
     Dates: start: 20081001, end: 20140616
  2. PREMARIN [Concomitant]
     Active Substance: ESTROGENS, CONJUGATED
     Indication: Menopause
     Dates: start: 20140317, end: 20190405
  3. CYCLOBENZAPRINE [Concomitant]
     Active Substance: CYCLOBENZAPRINE
     Indication: Muscle relaxant therapy
     Dates: start: 20140419, end: 20190305
  4. AZELASTINE [Concomitant]
     Active Substance: AZELASTINE
     Indication: Multiple allergies
     Dates: start: 20150203, end: 20190221
  5. AMLODIPINE BENAZ [Concomitant]
     Indication: Hypertension
     Dates: start: 20140910, end: 20190409
  6. GABAPENTIN [Concomitant]
     Active Substance: GABAPENTIN
     Indication: Analgesic therapy
     Dates: start: 20160930, end: 20190325
  7. CEFDINIR [Concomitant]
     Active Substance: CEFDINIR
     Indication: Infection
     Dates: start: 20151222, end: 20190405
  8. METHYLPREDNISOLONE [Concomitant]
     Active Substance: METHYLPREDNISOLONE
     Indication: Inflammation
     Dates: start: 20140419, end: 20191107
  9. TRAMADOL [Concomitant]
     Active Substance: TRAMADOL
     Indication: Analgesic therapy
     Dates: start: 20140318, end: 20180830
  10. VYVANSE [Concomitant]
     Active Substance: LISDEXAMFETAMINE DIMESYLATE
     Indication: Attention deficit hyperactivity disorder
     Dates: start: 20161003, end: 20181128
  11. IBUPROFEN [Concomitant]
     Active Substance: IBUPROFEN
     Indication: Analgesic therapy
     Dates: start: 20140531, end: 20181221
  12. ONDANSETRON [Concomitant]
     Active Substance: ONDANSETRON
     Indication: Nausea
     Dates: start: 20160402, end: 20181009
  13. METAXALONE [Concomitant]
     Active Substance: METAXALONE
     Indication: Muscle relaxant therapy
     Dates: start: 20141024, end: 20181009
  14. CETIRIZINE HCL [Concomitant]
     Active Substance: CETIRIZINE HYDROCHLORIDE
     Indication: Multiple allergies
     Dates: start: 20161103, end: 20180904
  15. DICLOFENAC [Concomitant]
     Active Substance: DICLOFENAC
     Indication: Inflammatory pain
     Dates: start: 20140327, end: 20180802
  16. AMOXICILLIN\CLAVULANATE POTASSIUM [Concomitant]
     Active Substance: AMOXICILLIN\CLAVULANATE POTASSIUM
     Indication: Infection
     Dates: start: 20140318, end: 20180725
  17. PREDNISONE [Concomitant]
     Active Substance: PREDNISONE
     Indication: Inflammation
     Dates: start: 20140113, end: 20180413
  18. HYDROXYZINE [Concomitant]
     Active Substance: HYDROXYZINE HYDROCHLORIDE
     Indication: Multiple allergies
     Dates: start: 20160627, end: 20180320
  19. LIDOCAINE [Concomitant]
     Active Substance: LIDOCAINE
     Indication: Analgesic therapy
     Dates: start: 20140801, end: 20170721

REACTIONS (6)
  - Visual impairment [Not Recovered/Not Resolved]
  - Maculopathy [Unknown]
  - Dry age-related macular degeneration [Not Recovered/Not Resolved]
  - Anxiety [Not Recovered/Not Resolved]
  - Astigmatism [Unknown]
  - Depression [Not Recovered/Not Resolved]

NARRATIVE: CASE EVENT DATE: 20110501
